FAERS Safety Report 11186152 (Version 3)
Quarter: 2015Q3

REPORT INFORMATION
  Report Type: Report from Study
  Country: DE (occurrence: DE)
  Receive Date: 20150612
  Receipt Date: 20150724
  Transmission Date: 20151125
  Serious: Yes (Death, Life-Threatening)
  Sender: FDA-Public Use
  Company Number: DE-PFIZER INC-2015193578

PATIENT
  Age: 63 Year
  Sex: Male
  Weight: 69 kg

DRUGS (12)
  1. CYTARABINE. [Suspect]
     Active Substance: CYTARABINE
     Dosage: 7880 MG, LAST DOSE
     Dates: start: 20150329, end: 20150530
  2. PANTOPRAZOLE [Concomitant]
     Active Substance: PANTOPRAZOLE SODIUM
     Dosage: 40 MG, UNK
     Dates: end: 20150606
  3. CLEXANE [Concomitant]
     Active Substance: ENOXAPARIN SODIUM
     Dosage: 0.4 ML, UNK
     Dates: start: 20150527, end: 20150605
  4. RITUXIMAB [Suspect]
     Active Substance: RITUXIMAB
     Dosage: 739 MG, LAST DOSE
     Dates: start: 20150327, end: 20150528
  5. FENTANYL. [Concomitant]
     Active Substance: FENTANYL
     Dosage: 37.5 UG/H, EVERY 3 DAYS
     Dates: start: 20150527, end: 20150606
  6. CLONT [Concomitant]
     Dosage: 1500 MG, UNK
     Dates: start: 20150605, end: 20150606
  7. REMERGIL [Concomitant]
     Active Substance: MIRTAZAPINE
     Dosage: 15 MG, UNK
     Dates: start: 20150527, end: 20150606
  8. NEUPOGEN [Concomitant]
     Active Substance: FILGRASTIM
     Dosage: 2X48 THOUSANDS UNITS
     Dates: start: 20150529, end: 20150606
  9. TEMSIROLIMUS [Suspect]
     Active Substance: TEMSIROLIMUS
     Dosage: 15 MG, INFUSION- CYCLIC ON DAY 1 AND 8
     Dates: start: 20150326, end: 20150603
  10. DEXAMETHASONE. [Suspect]
     Active Substance: DEXAMETHASONE
     Dosage: 40 MG, LAST DOSE
     Dates: start: 20150328, end: 20150601
  11. CISPLATIN. [Suspect]
     Active Substance: CISPLATIN
     Dosage: 197 MG, LAST DOSE
     Dates: start: 20150328, end: 20150529
  12. CITALOPRAM [Concomitant]
     Active Substance: CITALOPRAM HYDROBROMIDE
     Dosage: 10 MG, UNK
     Dates: start: 20150527, end: 20150606

REACTIONS (1)
  - Cerebral haemorrhage [Fatal]

NARRATIVE: CASE EVENT DATE: 20150606
